FAERS Safety Report 14655658 (Version 1)
Quarter: 2018Q1

REPORT INFORMATION
  Report Type: Spontaneous
  Country: US (occurrence: US)
  Receive Date: 20180319
  Receipt Date: 20180319
  Transmission Date: 20180509
  Serious: Yes (Other)
  Sender: FDA-Public Use
  Company Number: US-TEVA-2018-US-869112

PATIENT
  Sex: Female

DRUGS (2)
  1. CLONAZEPAM. [Suspect]
     Active Substance: CLONAZEPAM
     Indication: ANXIETY
     Route: 065
  2. CLONAZEPAM. [Suspect]
     Active Substance: CLONAZEPAM
     Indication: PANIC ATTACK

REACTIONS (16)
  - Cardiac disorder [Unknown]
  - Lung disorder [Unknown]
  - Muscular weakness [Unknown]
  - Dizziness [Unknown]
  - Oxygen saturation decreased [Unknown]
  - Fibromyalgia [Unknown]
  - Aortic valve incompetence [Unknown]
  - Muscle disorder [Unknown]
  - Impaired work ability [Unknown]
  - Disturbance in attention [Unknown]
  - Heart rate increased [Unknown]
  - Pneumonitis [Unknown]
  - Palpitations [Unknown]
  - Confusional state [Unknown]
  - Muscle spasms [Unknown]
  - Impaired driving ability [Unknown]
